FAERS Safety Report 5236598-3 (Version None)
Quarter: 2007Q1

REPORT INFORMATION
  Report Type: 
  Country: None (occurrence: None)
  Receive Date: 20070208
  Receipt Date: 20070117
  Transmission Date: 20070707
  Serious: Yes (Death, Other)
  Sender: FDA-Public Use
  Company Number: 2007PV000002

PATIENT
  Age: 67 Year
  Sex: Female

DRUGS (2)
  1. DEPODUR [Suspect]
     Indication: PAIN
     Dosage: 10 MG; X1; ED
     Route: 008
     Dates: start: 20060626, end: 20060626
  2. MORPHINE SULFATE [Concomitant]

REACTIONS (10)
  - ABDOMINAL INFECTION [None]
  - DRUG INEFFECTIVE [None]
  - HAEMODIALYSIS [None]
  - HYPOTENSION [None]
  - INTESTINAL ISCHAEMIA [None]
  - PAIN [None]
  - POST PROCEDURAL COMPLICATION [None]
  - RENAL FAILURE [None]
  - RESTLESSNESS [None]
  - SHORT-BOWEL SYNDROME [None]
